FAERS Safety Report 24717222 (Version 1)
Quarter: 2024Q4

REPORT INFORMATION
  Report Type: Spontaneous
  Country: US (occurrence: None)
  Receive Date: 20241209
  Receipt Date: 20241209
  Transmission Date: 20250115
  Serious: Yes (Disabling)
  Sender: Public
  Company Number: None

PATIENT
  Age: 75 Year
  Sex: Female
  Weight: 60.75 kg

DRUGS (11)
  1. PLAQUENIL [Suspect]
     Active Substance: HYDROXYCHLOROQUINE SULFATE
     Indication: Systemic lupus erythematosus
     Dosage: FREQUENCY : DAILY;?
     Route: 048
  2. METHOTREXATE [Concomitant]
     Active Substance: METHOTREXATE
  3. AZITHROMYCIN [Concomitant]
     Active Substance: AZITHROMYCIN
  4. FAMOTIDINE [Concomitant]
     Active Substance: FAMOTIDINE
  5. LEVOTHYROXINE [Concomitant]
     Active Substance: LEVOTHYROXINE
  6. MULTI-VITAMIN [Concomitant]
     Active Substance: .ALPHA.-TOCOPHEROL ACETATE, DL-\ASCORBIC ACID\CYANOCOBALAMIN\FLUORIDE ION\FOLIC ACID\NIACIN\PYRIDOXI
  7. C [Concomitant]
  8. BORON [Concomitant]
     Active Substance: BORON
  9. LEVOMEFOLATE CALCIUM [Concomitant]
     Active Substance: LEVOMEFOLATE CALCIUM
  10. BIOTIN [Concomitant]
     Active Substance: BIOTIN
  11. VITAMIN B [Concomitant]
     Active Substance: VITAMIN B

REACTIONS (3)
  - Polymyositis [None]
  - Therapeutic product effect decreased [None]
  - Mixed connective tissue disease [None]

NARRATIVE: CASE EVENT DATE: 20220307
